FAERS Safety Report 11688424 (Version 1)
Quarter: 2015Q4

REPORT INFORMATION
  Report Type: Spontaneous
  Country: CA (occurrence: CA)
  Receive Date: 20151101
  Receipt Date: 20151101
  Transmission Date: 20160304
  Serious: Yes (Other)
  Sender: FDA-Public Use
  Company Number: CA-TEVA-604057ACC

PATIENT
  Age: 50 Year
  Sex: Female
  Weight: 69 kg

DRUGS (1)
  1. CARBOPLATIN. [Suspect]
     Active Substance: CARBOPLATIN
     Indication: PRODUCT USED FOR UNKNOWN INDICATION
     Route: 042

REACTIONS (7)
  - Dry mouth [Recovered/Resolved]
  - Erythema [Recovered/Resolved]
  - Urticaria [Recovered/Resolved]
  - Back pain [Recovered/Resolved]
  - Blood pressure increased [Recovered/Resolved]
  - Rash papular [Recovered/Resolved]
  - Pruritus [Recovered/Resolved]
